FAERS Safety Report 23740771 (Version 2)
Quarter: 2024Q2

REPORT INFORMATION
  Report Type: Spontaneous
  Country: AU (occurrence: AU)
  Receive Date: 20240415
  Receipt Date: 20240507
  Transmission Date: 20240716
  Serious: Yes (Other)
  Sender: FDA-Public Use
  Company Number: AU-ABBVIE-5718600

PATIENT
  Age: 32 Year
  Sex: Female

DRUGS (2)
  1. HUMIRA [Suspect]
     Active Substance: ADALIMUMAB
     Indication: Product used for unknown indication
     Dosage: LAST ADMIN DATE: 2024
     Route: 058
     Dates: start: 20240410
  2. METHOTREXATE [Concomitant]
     Active Substance: METHOTREXATE
     Indication: Psoriatic arthropathy
     Route: 058
     Dates: start: 20230321

REACTIONS (1)
  - Haematemesis [Not Recovered/Not Resolved]

NARRATIVE: CASE EVENT DATE: 20240410
